FAERS Safety Report 11812511 (Version 30)
Quarter: 2017Q2

REPORT INFORMATION
  Report Type: Report from Study
  Country: CA (occurrence: CA)
  Receive Date: 20151208
  Receipt Date: 20170628
  Transmission Date: 20170829
  Serious: Yes (Hospitalization, Other)
  Sender: FDA-Public Use
  Company Number: PHHY2009CA075027

PATIENT
  Age: 60 Year
  Sex: Female

DRUGS (23)
  1. SANDOSTATIN LAR DEPOT [Suspect]
     Active Substance: OCTREOTIDE ACETATE
     Dosage: 40 MG, EVERY 2 WEEKS
     Route: 030
     Dates: start: 20100714, end: 20111123
  2. VIOKASE [Concomitant]
     Active Substance: PANCRELIPASE
     Indication: PRODUCT USED FOR UNKNOWN INDICATION
     Dosage: 1 DF, TID
     Route: 065
     Dates: start: 20110714
  3. VANCOMYCIN [Concomitant]
     Active Substance: VANCOMYCIN
     Indication: PRODUCT USED FOR UNKNOWN INDICATION
     Dosage: UNK, FOR 7 DAYS
     Route: 042
     Dates: start: 20130627
  4. SANDOSTATIN LAR DEPOT [Suspect]
     Active Substance: OCTREOTIDE ACETATE
     Dosage: 30 MG, EVERY 2 WEEKS
     Route: 030
     Dates: start: 20100319, end: 20100713
  5. SANDOSTATIN LAR DEPOT [Suspect]
     Active Substance: OCTREOTIDE ACETATE
     Dosage: 40 MG, EVERY 3 WEEKS
     Route: 030
     Dates: start: 20121018, end: 20130328
  6. FERROUS SULFATE. [Concomitant]
     Active Substance: FERROUS SULFATE
     Indication: PRODUCT USED FOR UNKNOWN INDICATION
     Dosage: 300 MG, BID
     Route: 065
  7. SANDOSTATIN LAR DEPOT [Suspect]
     Active Substance: OCTREOTIDE ACETATE
     Dosage: 30 MG, EVERY 3 WEEKS
     Route: 030
     Dates: start: 20091204, end: 20091215
  8. EMTEC-30 [Concomitant]
     Indication: PRODUCT USED FOR UNKNOWN INDICATION
     Route: 065
  9. PANCREASE MT [Concomitant]
     Active Substance: PANCRELIPASE
     Indication: PRODUCT USED FOR UNKNOWN INDICATION
     Dosage: UNK
     Route: 065
  10. SANDOSTATIN LAR DEPOT [Suspect]
     Active Substance: OCTREOTIDE ACETATE
     Dosage: 40 MG, EVERY 3 WEEKS
     Route: 030
     Dates: start: 20100227, end: 20100318
  11. SANDOSTATIN LAR DEPOT [Suspect]
     Active Substance: OCTREOTIDE ACETATE
     Dosage: 40 MG, EVERY 3 WEEKS
     Route: 030
     Dates: start: 20111124, end: 20121017
  12. SANDOSTATIN [Suspect]
     Active Substance: OCTREOTIDE ACETATE
     Indication: CARCINOID TUMOUR OF THE GASTROINTESTINAL TRACT
     Dosage: 50 UG, TID
     Route: 058
     Dates: start: 20130214, end: 20130302
  13. SYNTHROID [Concomitant]
     Active Substance: LEVOTHYROXINE SODIUM
     Indication: PRODUCT USED FOR UNKNOWN INDICATION
     Route: 065
     Dates: start: 20110611
  14. SANDOSTATIN LAR DEPOT [Suspect]
     Active Substance: OCTREOTIDE ACETATE
     Dosage: 30 MG, BIW (EVERY 2 WEEKS)
     Route: 030
     Dates: start: 20101216, end: 20110519
  15. NEXIUM 1-2-3 [Suspect]
     Active Substance: AMOXICILLIN\CLARITHROMYCIN\ESOMEPRAZOLE
     Indication: PRODUCT USED FOR UNKNOWN INDICATION
     Route: 065
  16. SANDOSTATIN LAR DEPOT [Suspect]
     Active Substance: OCTREOTIDE ACETATE
     Indication: CARCINOID TUMOUR OF THE GASTROINTESTINAL TRACT
     Dosage: 30 MG,  EVERY 4 WEEKS
     Route: 030
     Dates: start: 20070503, end: 20091203
  17. SANDOSTATIN LAR DEPOT [Suspect]
     Active Substance: OCTREOTIDE ACETATE
     Dosage: 40 MG, EVERY 2 WEEKS
     Route: 030
     Dates: start: 20130412
  18. SANDOSTATIN LAR DEPOT [Suspect]
     Active Substance: OCTREOTIDE ACETATE
     Dosage: 20 MG, UNK
     Route: 030
     Dates: start: 20170117
  19. RAMIPRIL. [Concomitant]
     Active Substance: RAMIPRIL
     Indication: PRODUCT USED FOR UNKNOWN INDICATION
     Route: 065
  20. GABAPENTIN. [Concomitant]
     Active Substance: GABAPENTIN
     Indication: SEIZURE
     Route: 065
  21. SANDOSTATIN LAR DEPOT [Suspect]
     Active Substance: OCTREOTIDE ACETATE
     Dosage: 20 MG,  EVERY 3 WEEKS
     Route: 030
     Dates: start: 20091113, end: 20091203
  22. SANDOSTATIN LAR DEPOT [Suspect]
     Active Substance: OCTREOTIDE ACETATE
     Dosage: 40 MG, EVERY 3 WEEKS
     Route: 030
     Dates: start: 20100520, end: 20110226
  23. SANDOSTATIN LAR DEPOT [Suspect]
     Active Substance: OCTREOTIDE ACETATE
     Dosage: 20 MG, UNK
     Route: 030
     Dates: start: 20170126

REACTIONS (117)
  - Post procedural complication [Unknown]
  - Wound infection [Unknown]
  - Haematuria [Recovered/Resolved]
  - Breast mass [Unknown]
  - Pyrexia [Recovered/Resolved]
  - Micturition urgency [Unknown]
  - Blood pressure increased [Unknown]
  - Depressed mood [Unknown]
  - Glomerular filtration rate decreased [Unknown]
  - Dermatitis allergic [Unknown]
  - Abdominal distension [Unknown]
  - Injection site erythema [Recovered/Resolved]
  - Chest pain [Unknown]
  - Wound abscess [Unknown]
  - Arterial occlusive disease [Unknown]
  - Hepatic lesion [Unknown]
  - Herpes zoster [Unknown]
  - Gastrointestinal obstruction [Not Recovered/Not Resolved]
  - Pain in extremity [Unknown]
  - Back pain [Unknown]
  - Mucous stools [Recovered/Resolved]
  - Anal fissure [Unknown]
  - Dysuria [Recovering/Resolving]
  - Peripheral swelling [Unknown]
  - Flushing [Unknown]
  - Urine abnormality [Recovered/Resolved]
  - Pleuritic pain [Not Recovered/Not Resolved]
  - Oropharyngeal pain [Unknown]
  - Dizziness [Unknown]
  - Rash [Recovering/Resolving]
  - Vomiting [Unknown]
  - Splenomegaly [Unknown]
  - Adrenal mass [Unknown]
  - Rhinorrhoea [Not Recovered/Not Resolved]
  - Muscle mass [Unknown]
  - Feeling hot [Unknown]
  - Renal pain [Unknown]
  - Suprapubic pain [Unknown]
  - Blood pressure systolic increased [Unknown]
  - Injection site scar [Unknown]
  - Food allergy [Unknown]
  - Flank pain [Unknown]
  - Protein urine present [Unknown]
  - Cystitis [Unknown]
  - Injection site swelling [Recovered/Resolved]
  - Inappropriate schedule of drug administration [Unknown]
  - Road traffic accident [Unknown]
  - Herpes zoster [Recovered/Resolved]
  - Chills [Unknown]
  - Hypertension [Unknown]
  - Ureteric cancer metastatic [Unknown]
  - Foot fracture [Recovered/Resolved]
  - Weight decreased [Not Recovered/Not Resolved]
  - Anaemia [Unknown]
  - Abnormal faeces [Unknown]
  - Muscle spasms [Unknown]
  - Joint swelling [Unknown]
  - Fibrin D dimer increased [Unknown]
  - Pleurisy [Unknown]
  - Bladder pain [Unknown]
  - Hyperhidrosis [Unknown]
  - Injection site pain [Recovering/Resolving]
  - Myalgia [Recovered/Resolved]
  - Renal cyst [Unknown]
  - Gastric cancer recurrent [Unknown]
  - Kidney infection [Unknown]
  - Type 2 diabetes mellitus [Unknown]
  - Anuria [Unknown]
  - Haemoglobin decreased [Unknown]
  - Night sweats [Unknown]
  - Abdominal discomfort [Recovering/Resolving]
  - Product quality issue [Unknown]
  - Needle issue [Unknown]
  - Nephrolithiasis [Recovered/Resolved]
  - Cholecystitis infective [Unknown]
  - Diarrhoea [Unknown]
  - Post procedural cellulitis [Recovering/Resolving]
  - Ureteritis [Unknown]
  - Pulmonary oedema [Unknown]
  - Urinary tract infection [Recovering/Resolving]
  - Gastrointestinal infection [Recovering/Resolving]
  - Malignant ascites [Unknown]
  - Flank pain [Recovered/Resolved]
  - Wrist fracture [Unknown]
  - Limb discomfort [Unknown]
  - Cardiac disorder [Unknown]
  - Hypokinesia [Unknown]
  - Chromaturia [Recovered/Resolved]
  - Pneumonia [Unknown]
  - Adrenal adenoma [Unknown]
  - Soft tissue disorder [Unknown]
  - Nausea [Unknown]
  - Musculoskeletal stiffness [Unknown]
  - Pollakiuria [Unknown]
  - Mass [Unknown]
  - Urine odour abnormal [Recovered/Resolved]
  - Faeces discoloured [Unknown]
  - Contusion [Unknown]
  - Malaise [Unknown]
  - Single functional kidney [Unknown]
  - Blood creatinine increased [Unknown]
  - Body temperature decreased [Unknown]
  - Flatulence [Unknown]
  - Injection site mass [Unknown]
  - Pain [Not Recovered/Not Resolved]
  - Nephrolithiasis [Recovered/Resolved]
  - Benign breast neoplasm [Unknown]
  - Ureteric obstruction [Recovered/Resolved]
  - Cystitis [Recovered/Resolved]
  - Abdominal pain [Recovering/Resolving]
  - Viral upper respiratory tract infection [Not Recovered/Not Resolved]
  - Nasal congestion [Not Recovered/Not Resolved]
  - Fall [Unknown]
  - Joint injury [Unknown]
  - Bladder disorder [Unknown]
  - Underdose [Unknown]
  - Pruritus [Unknown]

NARRATIVE: CASE EVENT DATE: 2008
